FAERS Safety Report 5107802-7 (Version None)
Quarter: 2006Q3

REPORT INFORMATION
  Report Type: 
  Country: None (occurrence: None)
  Receive Date: 20060919
  Receipt Date: 20060905
  Transmission Date: 20061208
  Serious: Yes (Hospitalization)
  Sender: FDA-Public Use
  Company Number: BEWYE866206SEP06

PATIENT
  Age: 53 Year
  Sex: Female

DRUGS (4)
  1. ENBREL [Suspect]
     Indication: PSORIATIC ARTHROPATHY
     Route: 058
     Dates: start: 20050101
  2. TRITACE [Concomitant]
  3. CALCIUM CARBONATE [Concomitant]
  4. TRIAMTERENE AND HYDROCHLOROTHIAZIDE [Concomitant]

REACTIONS (4)
  - HUMERUS FRACTURE [None]
  - IMPAIRED HEALING [None]
  - PELVIC FRACTURE [None]
  - RIB FRACTURE [None]
